FAERS Safety Report 23822571 (Version 1)
Quarter: 2024Q2

REPORT INFORMATION
  Report Type: Spontaneous
  Country: CA (occurrence: CA)
  Receive Date: 20240506
  Receipt Date: 20240506
  Transmission Date: 20240716
  Serious: Yes (Hospitalization, Other)
  Sender: FDA-Public Use
  Company Number: CA-TEVA-VS-3193814

PATIENT
  Age: 47 Year
  Sex: Female

DRUGS (49)
  1. RISPERIDONE [Suspect]
     Active Substance: RISPERIDONE
     Indication: Affective disorder
     Route: 048
  2. GABAPENTIN [Suspect]
     Active Substance: GABAPENTIN
     Indication: Scoliosis
     Dosage: TIME INTERVAL: 0.33333333 DAYS
     Route: 048
  3. GABAPENTIN [Suspect]
     Active Substance: GABAPENTIN
     Indication: Scoliosis
     Dosage: TIME INTERVAL: 0.33333333 DAYS
     Route: 048
  4. GABAPENTIN [Suspect]
     Active Substance: GABAPENTIN
     Indication: Scoliosis
     Route: 048
  5. CYCLOBENZAPRINE [Suspect]
     Active Substance: CYCLOBENZAPRINE
     Indication: Scoliosis
     Dosage: TIME INTERVAL: 0.33333333 DAYS
     Route: 048
  6. CYCLOBENZAPRINE [Suspect]
     Active Substance: CYCLOBENZAPRINE
     Indication: Scoliosis
     Route: 048
  7. CYCLOBENZAPRINE [Suspect]
     Active Substance: CYCLOBENZAPRINE
     Indication: Scoliosis
     Route: 048
  8. CYCLOBENZAPRINE [Suspect]
     Active Substance: CYCLOBENZAPRINE
     Indication: Scoliosis
     Route: 048
  9. DEPAKOTE [Suspect]
     Active Substance: DIVALPROEX SODIUM
     Indication: Mania
     Route: 048
  10. DEPAKOTE [Suspect]
     Active Substance: DIVALPROEX SODIUM
     Indication: Mania
     Route: 048
  11. DEPAKOTE [Suspect]
     Active Substance: DIVALPROEX SODIUM
     Indication: Mania
     Route: 048
  12. DEPAKOTE [Suspect]
     Active Substance: DIVALPROEX SODIUM
     Indication: Mania
     Route: 048
  13. DEPAKOTE [Suspect]
     Active Substance: DIVALPROEX SODIUM
     Indication: Mania
     Route: 065
  14. ESTRADIOL [Concomitant]
     Active Substance: ESTRADIOL
     Indication: Endometriosis
     Route: 048
  15. CLONIDINE [Concomitant]
     Active Substance: CLONIDINE
     Indication: Drug withdrawal syndrome
     Route: 065
  16. CLONIDINE [Concomitant]
     Active Substance: CLONIDINE
     Indication: Drug withdrawal syndrome
     Route: 065
  17. DOXEPIN HYDROCHLORIDE [Suspect]
     Active Substance: DOXEPIN HYDROCHLORIDE
     Indication: Major depression
     Route: 048
  18. DOXEPIN HYDROCHLORIDE [Suspect]
     Active Substance: DOXEPIN HYDROCHLORIDE
     Indication: Major depression
     Route: 048
  19. DOXEPIN HYDROCHLORIDE [Suspect]
     Active Substance: DOXEPIN HYDROCHLORIDE
     Indication: Major depression
     Route: 048
  20. DOXEPIN HYDROCHLORIDE [Suspect]
     Active Substance: DOXEPIN HYDROCHLORIDE
     Indication: Major depression
     Route: 048
  21. FUROSEMIDE [Concomitant]
     Active Substance: FUROSEMIDE
     Indication: Oedema peripheral
     Route: 048
  22. LORAZEPAM [Suspect]
     Active Substance: LORAZEPAM
     Indication: Withdrawal syndrome
     Dosage: TIME INTERVAL: TOTAL
     Route: 048
  23. LORAZEPAM [Suspect]
     Active Substance: LORAZEPAM
     Indication: Withdrawal syndrome
     Route: 048
  24. LORAZEPAM [Suspect]
     Active Substance: LORAZEPAM
     Indication: Withdrawal syndrome
     Route: 048
  25. LORAZEPAM [Suspect]
     Active Substance: LORAZEPAM
     Indication: Withdrawal syndrome
     Route: 065
  26. LORAZEPAM [Suspect]
     Active Substance: LORAZEPAM
     Indication: Withdrawal syndrome
     Route: 030
  27. LORAZEPAM [Suspect]
     Active Substance: LORAZEPAM
     Indication: Withdrawal syndrome
     Route: 048
  28. LORAZEPAM [Suspect]
     Active Substance: LORAZEPAM
     Indication: Withdrawal syndrome
     Dosage: TIME INTERVAL: TOTAL
     Route: 030
  29. METHADONE [Suspect]
     Active Substance: METHADONE HYDROCHLORIDE
     Indication: Drug use disorder
     Route: 048
  30. METHADONE [Suspect]
     Active Substance: METHADONE HYDROCHLORIDE
     Indication: Drug use disorder
     Route: 048
  31. METHADONE [Suspect]
     Active Substance: METHADONE HYDROCHLORIDE
     Indication: Drug use disorder
     Route: 048
  32. METHADONE [Suspect]
     Active Substance: METHADONE HYDROCHLORIDE
     Indication: Drug use disorder
     Route: 048
  33. METHADONE [Suspect]
     Active Substance: METHADONE HYDROCHLORIDE
     Indication: Drug use disorder
     Route: 048
  34. METHADONE [Suspect]
     Active Substance: METHADONE HYDROCHLORIDE
     Indication: Drug use disorder
     Route: 048
  35. METHADONE [Suspect]
     Active Substance: METHADONE HYDROCHLORIDE
     Indication: Drug use disorder
     Route: 048
  36. NAPROXEN [Concomitant]
     Active Substance: NAPROXEN
     Indication: Scoliosis
     Route: 048
  37. ALBUTEROL [Concomitant]
     Active Substance: ALBUTEROL
     Indication: Chronic obstructive pulmonary disease
     Route: 065
  38. TIOTROPIUM [Concomitant]
     Active Substance: TIOTROPIUM
     Indication: Chronic obstructive pulmonary disease
     Route: 065
  39. ATENOLOL [Concomitant]
     Active Substance: ATENOLOL
     Indication: Hypertension
     Route: 048
  40. FLUOXETINE HYDROCHLORIDE [Suspect]
     Active Substance: FLUOXETINE HYDROCHLORIDE
     Indication: Major depression
     Route: 048
  41. FLUOXETINE HYDROCHLORIDE [Suspect]
     Active Substance: FLUOXETINE HYDROCHLORIDE
     Indication: Major depression
     Route: 048
  42. FLUOXETINE HYDROCHLORIDE [Suspect]
     Active Substance: FLUOXETINE HYDROCHLORIDE
     Indication: Major depression
     Route: 048
  43. FLUOXETINE HYDROCHLORIDE [Suspect]
     Active Substance: FLUOXETINE HYDROCHLORIDE
     Indication: Major depression
     Route: 048
  44. FLUOXETINE HYDROCHLORIDE [Suspect]
     Active Substance: FLUOXETINE HYDROCHLORIDE
     Indication: Major depression
     Route: 048
  45. LORAZEPAM [Suspect]
     Active Substance: LORAZEPAM
     Indication: Withdrawal syndrome
     Route: 048
  46. LORAZEPAM [Suspect]
     Active Substance: LORAZEPAM
     Indication: Withdrawal syndrome
     Route: 048
  47. LORAZEPAM [Suspect]
     Active Substance: LORAZEPAM
     Indication: Withdrawal syndrome
     Route: 048
  48. QUETIAPINE FUMARATE [Suspect]
     Active Substance: QUETIAPINE FUMARATE
     Indication: Affective disorder
     Route: 065
  49. QUETIAPINE FUMARATE [Suspect]
     Active Substance: QUETIAPINE FUMARATE
     Indication: Affective disorder
     Route: 048

REACTIONS (7)
  - Toxicity to various agents [Recovering/Resolving]
  - Depressed level of consciousness [Recovering/Resolving]
  - Drug interaction [Recovering/Resolving]
  - Mania [Recovering/Resolving]
  - Multiple drug therapy [Recovering/Resolving]
  - Off label use [Recovering/Resolving]
  - Respiratory depression [Recovering/Resolving]
